FAERS Safety Report 5841337-9 (Version None)
Quarter: 2008Q3

REPORT INFORMATION
  Report Type: 
  Country: None (occurrence: None)
  Receive Date: 20080731
  Receipt Date: 20080512
  Transmission Date: 20090109
  Serious: No
  Sender: FDA-Public Use
  Company Number: US200805002877

PATIENT
  Age: 42 Year
  Sex: Female
  Weight: 88 kg

DRUGS (4)
  1. BYETTA [Suspect]
     Indication: TYPE 2 DIABETES MELLITUS
     Dosage: 5 UG, 2/D, SUBCUTANEOUS; 10 UG, 2/D, SUBCUTANEOUS
     Route: 058
     Dates: start: 20070701, end: 20071001
  2. BYETTA [Suspect]
     Indication: TYPE 2 DIABETES MELLITUS
     Dosage: 5 UG, 2/D, SUBCUTANEOUS; 10 UG, 2/D, SUBCUTANEOUS
     Route: 058
     Dates: start: 20071001
  3. ORAL CONTRACEPTIVES NOS (ORAL CONTRACEPTIVE NOS) [Concomitant]
  4. METFORMIN HCL [Concomitant]

REACTIONS (19)
  - AMENORRHOEA [None]
  - BLOOD GLUCOSE DECREASED [None]
  - BLOOD GLUCOSE INCREASED [None]
  - CONFUSIONAL STATE [None]
  - CONTUSION [None]
  - DEPRESSION [None]
  - DERMATITIS CONTACT [None]
  - FEELING HOT [None]
  - FUNGAL INFECTION [None]
  - HYPERHIDROSIS [None]
  - HYPOAESTHESIA [None]
  - INJECTION SITE ERYTHEMA [None]
  - INJECTION SITE HAEMATOMA [None]
  - MALAISE [None]
  - NAUSEA [None]
  - ROAD TRAFFIC ACCIDENT [None]
  - SKIN DISORDER [None]
  - THINKING ABNORMAL [None]
  - WEIGHT DECREASED [None]
